FAERS Safety Report 10029082 (Version 1)
Quarter: 2014Q1

REPORT INFORMATION
  Report Type: Spontaneous
  Country: US (occurrence: US)
  Receive Date: 20140321
  Receipt Date: 20140321
  Transmission Date: 20141002
  Serious: Yes (Other)
  Sender: FDA-Public Use
  Company Number: US-ASTRAZENECA-2014SE18227

PATIENT
  Age: 74 Year
  Sex: Female
  Weight: 83 kg

DRUGS (7)
  1. TOPROL-XL [Suspect]
     Indication: HYPERTENSION
     Route: 048
  2. TOPROL-XL [Suspect]
     Indication: HYPERTENSION
     Dosage: GENERIC 100 MG DAILY
     Route: 048
  3. TOPROL-XL [Suspect]
     Indication: HYPERTENSION
     Dosage: GENERIC DR. REDDYS LABORATORIES 100 MG DAILY
     Route: 048
  4. VYTORIN [Concomitant]
     Indication: BLOOD CHOLESTEROL INCREASED
     Dosage: 10-40 HS
     Route: 048
  5. SUDAFED [Concomitant]
     Indication: MULTIPLE ALLERGIES
     Dosage: UNKNOWN UNK
     Route: 048
  6. ZYRTEC [Concomitant]
     Indication: MULTIPLE ALLERGIES
     Dosage: UNKNOWN UNK
     Route: 048
  7. PLAVIX [Concomitant]
     Indication: VASCULAR OCCLUSION
     Dosage: GENERIC UNK
     Route: 048
     Dates: start: 2009

REACTIONS (8)
  - Vascular occlusion [Unknown]
  - Headache [Unknown]
  - Hypertension [Unknown]
  - Nervousness [Unknown]
  - Malaise [Unknown]
  - Body height decreased [Unknown]
  - Drug ineffective [Unknown]
  - Intentional drug misuse [Unknown]
